FAERS Safety Report 12327395 (Version 1)
Quarter: 2016Q2

REPORT INFORMATION
  Report Type: Spontaneous
  Country: NO (occurrence: NO)
  Receive Date: 20160503
  Receipt Date: 20160503
  Transmission Date: 20160815
  Serious: Yes (Death)
  Sender: FDA-Public Use
  Company Number: NO-MEDA-2016040123

PATIENT
  Age: 63 Year
  Sex: Female

DRUGS (7)
  1. CITALOPRAM [Suspect]
     Active Substance: CITALOPRAM HYDROBROMIDE
  2. ZOPICLONE [Suspect]
     Active Substance: ZOPICLONE
  3. ZOLPIDEM [Suspect]
     Active Substance: ZOLPIDEM\ZOLPIDEM TARTRATE
  4. OXAZEPAM. [Suspect]
     Active Substance: OXAZEPAM
  5. PARACETAMOL [Suspect]
     Active Substance: ACETAMINOPHEN
  6. CODEINE [Suspect]
     Active Substance: CODEINE
  7. DIAZEPAM. [Suspect]
     Active Substance: DIAZEPAM

REACTIONS (1)
  - Toxicity to various agents [Fatal]
